FAERS Safety Report 12174799 (Version 2)
Quarter: 2016Q1

REPORT INFORMATION
  Report Type: Spontaneous
  Country: US (occurrence: US)
  Receive Date: 20160314
  Receipt Date: 20160317
  Transmission Date: 20160526
  Serious: No
  Sender: FDA-Public Use
  Company Number: US-009507513-1603USA005254

PATIENT
  Sex: Female
  Weight: 104.31 kg

DRUGS (2)
  1. NEXPLANON [Suspect]
     Active Substance: ETONOGESTREL
     Dosage: 68 MG, 1 ROD EVERY 3 YEARS
     Route: 059
     Dates: start: 20150415, end: 20160311
  2. NEXPLANON [Suspect]
     Active Substance: ETONOGESTREL
     Dosage: A SECOD ROD, EVERY 3 YEARS
     Route: 059
     Dates: start: 20160311

REACTIONS (3)
  - Product quality issue [Unknown]
  - No adverse event [Unknown]
  - Device breakage [Recovered/Resolved]
